FAERS Safety Report 7349674-6 (Version None)
Quarter: 2011Q1

REPORT INFORMATION
  Report Type: 
  Country: None (occurrence: None)
  Receive Date: 20110309
  Receipt Date: 20110309
  Transmission Date: 20110831
  Serious: Yes (Other)
  Sender: FDA-Public Use
  Company Number: None

PATIENT
  Age: 13 Month
  Sex: Male
  Weight: 12.2471 kg

DRUGS (1)
  1. TAMIFLU [Suspect]
     Indication: INFLUENZA
     Dosage: 30 MG (2.5 ML) BID PO 3/1/11 AT 10:15AM + AT 6:45PM
     Route: 048
     Dates: start: 20110301

REACTIONS (2)
  - CRYING [None]
  - BODY TEMPERATURE DECREASED [None]
